FAERS Safety Report 9383059 (Version 1)
Quarter: 2013Q3

REPORT INFORMATION
  Report Type: Spontaneous
  Country: US (occurrence: US)
  Receive Date: 20130704
  Receipt Date: 20130704
  Transmission Date: 20140515
  Serious: No
  Sender: FDA-Public Use
  Company Number: US-009507513-1307GBR000965

PATIENT
  Age: 50 Year
  Sex: Female

DRUGS (4)
  1. VYTORIN [Suspect]
     Dosage: VYTORIN 10/40
  2. CALCIUM (UNSPECIFIED) [Concomitant]
  3. VITAMIN D (UNSPECIFIED) [Concomitant]
  4. OMEGA-3 MARINE TRIGLYCERIDES [Concomitant]

REACTIONS (1)
  - Myalgia [Recovered/Resolved]
